FAERS Safety Report 20016135 (Version 1)
Quarter: 2021Q4

REPORT INFORMATION
  Report Type: Spontaneous
  Country: US (occurrence: None)
  Receive Date: 20211102
  Receipt Date: 20211102
  Transmission Date: 20220303
  Serious: No
  Sender: FDA-Public Use
  Company Number: None

PATIENT
  Age: 31 Year
  Sex: Male

DRUGS (2)
  1. CEFTRIAXONE SODIUM [Suspect]
     Active Substance: CEFTRIAXONE SODIUM
     Route: 041
  2. DOXYCYCLINE [Suspect]
     Active Substance: DOXYCYCLINE
     Route: 048

REACTIONS (1)
  - Documented hypersensitivity to administered product [None]
